FAERS Safety Report 19071124 (Version 3)
Quarter: 2021Q2

REPORT INFORMATION
  Report Type: Report from Study
  Country: CA (occurrence: CA)
  Receive Date: 20210330
  Receipt Date: 20210429
  Transmission Date: 20210717
  Serious: Yes (Hospitalization, Other)
  Sender: FDA-Public Use
  Company Number: CA-B.I. PHARMACEUTICALS,INC./RIDGEFIELD-2020-BI-040932

PATIENT
  Age: 82 Year
  Sex: Female

DRUGS (3)
  1. OFEV [Suspect]
     Active Substance: NINTEDANIB
     Route: 048
     Dates: end: 202103
  2. OFEV [Suspect]
     Active Substance: NINTEDANIB
     Dosage: 150 MG AM AND 100 MG PM
     Route: 048
  3. OFEV [Suspect]
     Active Substance: NINTEDANIB
     Indication: IDIOPATHIC PULMONARY FIBROSIS
     Route: 048
     Dates: start: 20150820, end: 20191201

REACTIONS (6)
  - Transient ischaemic attack [Recovered/Resolved]
  - Amnesia [Recovered/Resolved]
  - Hyponatraemia [Recovered/Resolved]
  - Strangulated hernia [Not Recovered/Not Resolved]
  - Diarrhoea [Unknown]
  - Constipation [Not Recovered/Not Resolved]

NARRATIVE: CASE EVENT DATE: 20210325
